FAERS Safety Report 15268515 (Version 1)
Quarter: 2018Q3

REPORT INFORMATION
  Report Type: Spontaneous
  Country: US (occurrence: US)
  Receive Date: 20180725
  Receipt Date: 20180725
  Transmission Date: 20181010
  Serious: Yes (Hospitalization)
  Sender: FDA-Public Use
  Company Number: None

PATIENT
  Age: 67 Year
  Sex: Male
  Weight: 65.8 kg

DRUGS (4)
  1. XELODA [Concomitant]
     Active Substance: CAPECITABINE
     Dates: end: 20180713
  2. LEUCOVORIN CALCIUM. [Concomitant]
     Active Substance: LEUCOVORIN CALCIUM
     Dates: end: 20180529
  3. ELOXATIN [Concomitant]
     Active Substance: OXALIPLATIN
     Dates: end: 20180529
  4. 5?FLUOROURACIL (5?FU) [Suspect]
     Active Substance: FLUOROURACIL
     Dates: end: 20180531

REACTIONS (5)
  - Perineal pain [None]
  - Gastrointestinal disorder [None]
  - Rectal haemorrhage [None]
  - Sepsis [None]
  - Hypoaesthesia [None]

NARRATIVE: CASE EVENT DATE: 20180716
